FAERS Safety Report 7541942-8 (Version None)
Quarter: 2011Q2

REPORT INFORMATION
  Report Type: 
  Country: None (occurrence: None)
  Receive Date: 20110613
  Receipt Date: 20110607
  Transmission Date: 20111010
  Serious: Yes (Other)
  Sender: FDA-Public Use
  Company Number: JP-B.I. PHARMACEUTICALS,INC./RIDGEFIELD-2011-BP-14283NB

PATIENT
  Age: 57 Year
  Sex: Male

DRUGS (4)
  1. CRESTOR [Concomitant]
     Indication: HYPERLIPIDAEMIA
     Dosage: 5 MG
     Route: 048
     Dates: start: 20090902
  2. TELMISARTAN AND HYDROCHLOROTHIAZIDE [Suspect]
     Indication: HYPERTENSION
     Dosage: TELMISARTAN40MG/HYDROCHLOROTHIAZIDE12.5MG
     Route: 048
     Dates: start: 20090713, end: 20110530
  3. ALLOPURINOL [Concomitant]
     Indication: HYPERLIPIDAEMIA
     Dosage: 200 MG
     Route: 048
     Dates: start: 20090902
  4. AMLODIPINE [Concomitant]
     Indication: HYPERTENSION
     Dosage: 10 MG
     Route: 048
     Dates: start: 20090924

REACTIONS (1)
  - INTERSTITIAL LUNG DISEASE [None]
